FAERS Safety Report 12308604 (Version 2)
Quarter: 2016Q2

REPORT INFORMATION
  Report Type: Spontaneous
  Country: US (occurrence: US)
  Receive Date: 20160427
  Receipt Date: 20160427
  Transmission Date: 20160815
  Serious: Yes (Death, Other)
  Sender: FDA-Public Use
  Company Number: US-CIPLA LTD.-2016US04341

PATIENT

DRUGS (9)
  1. CITALOPRAM [Suspect]
     Active Substance: CITALOPRAM HYDROBROMIDE
     Indication: DEPRESSION
     Dosage: 40 MG, QD
     Route: 065
     Dates: start: 201101
  2. BUPROPION. [Suspect]
     Active Substance: BUPROPION
     Dosage: 200 MG, QD
     Route: 065
     Dates: end: 201101
  3. DEPAKOTE [Suspect]
     Active Substance: DIVALPROEX SODIUM
     Dosage: 500 MG, QD
     Route: 065
     Dates: start: 2010
  4. DEPAKOTE [Suspect]
     Active Substance: DIVALPROEX SODIUM
     Dosage: 1000 MG, QD
     Route: 065
     Dates: start: 201101
  5. MELOXICAM. [Suspect]
     Active Substance: MELOXICAM
     Indication: MIGRAINE
     Dosage: 15 MG, QD
     Route: 065
     Dates: end: 201105
  6. NADOLOL. [Suspect]
     Active Substance: NADOLOL
     Indication: HYPERTENSION
     Dosage: 40 MG, QD
     Route: 065
  7. DEPAKOTE [Suspect]
     Active Substance: DIVALPROEX SODIUM
     Indication: MIGRAINE
     Dosage: 250 MG, QD
     Route: 065
     Dates: start: 200907
  8. CITALOPRAM [Suspect]
     Active Substance: CITALOPRAM HYDROBROMIDE
     Dosage: 60 MG, QD
     Route: 065
     Dates: start: 201101
  9. IBUPROFEN. [Concomitant]
     Active Substance: IBUPROFEN
     Dosage: UNK
     Route: 065

REACTIONS (4)
  - Arrhythmia [Fatal]
  - Drug-induced liver injury [Unknown]
  - Drug level above therapeutic [Unknown]
  - Long QT syndrome [Unknown]

NARRATIVE: CASE EVENT DATE: 201112
